FAERS Safety Report 17375877 (Version 4)
Quarter: 2021Q3

REPORT INFORMATION
  Report Type: Other
  Country: CZ (occurrence: CZ)
  Receive Date: 20200206
  Receipt Date: 20210917
  Transmission Date: 20211014
  Serious: Yes (Hospitalization, Other)
  Sender: FDA-Public Use
  Company Number: CZ-ROCHE-2538392

PATIENT
  Age: 56 Year
  Sex: Male

DRUGS (19)
  1. RITUXIMAB. [Suspect]
     Active Substance: RITUXIMAB
     Dosage: INITIATED RESCUE THERAPY WITH PLATINUM REGIMEN (R?ICE; RITUXIMAB, IPHOSPHAMIDE, CARBOPLATIN, ETOPOSI
     Route: 065
  2. METHOTREXATE. [Suspect]
     Active Substance: METHOTREXATE
     Indication: MANTLE CELL LYMPHOMA
     Dosage: ONE CYCLE OF HIGH DOSE METHOTREXATE (HD MTX)
     Route: 065
     Dates: start: 201901
  3. CYTARABINE. [Suspect]
     Active Substance: CYTARABINE
     Indication: MANTLE CELL LYMPHOMA
     Dosage: HIGH DOSE CYTARABINE (HD ARAC) WITH RITUXIMAB
     Route: 065
     Dates: start: 201902
  4. CARBOPLATIN. [Suspect]
     Active Substance: CARBOPLATIN
     Indication: MANTLE CELL LYMPHOMA
     Dosage: UNK, CYCLIC
     Route: 065
  5. RITUXIMAB. [Suspect]
     Active Substance: RITUXIMAB
     Dosage: HIGH DOSE CYTARABINE (HD ARAC) WITH RITUXIMAB
     Route: 065
     Dates: start: 201902
  6. RITUXIMAB. [Suspect]
     Active Substance: RITUXIMAB
     Dosage: SECOND CYCLE OF R?B
     Route: 065
     Dates: start: 201901
  7. MELPHALAN. [Concomitant]
     Active Substance: MELPHALAN
  8. RITUXIMAB. [Suspect]
     Active Substance: RITUXIMAB
     Dosage: NORDIC PROTOCOL (3 CYCLES R?MAXICHOP ALTERNATING WITH 3 CYCLES OF RITUXIMAB WITH HIGH DOSE CYTARABIN
     Route: 065
  9. RITUXIMAB. [Suspect]
     Active Substance: RITUXIMAB
     Dosage: GIVEN THIRD LINE TREATMENT WITH A COMBINATION OF RITUXIMAB AND BENDAMUSTINE (R?B REGIMEN)
     Route: 065
  10. BENDAMUSTINE [Suspect]
     Active Substance: BENDAMUSTINE
     Dosage: FOLLOWING CYCLE OF HD ARAC WAS THUS FORTIFIED WITH BENDAMUSTINE (SO CALLED R?BAC)
     Route: 065
  11. BENDAMUSTINE [Suspect]
     Active Substance: BENDAMUSTINE
     Dosage: INITIATED THIRD LINE TREATMENT WITH A COMBINATION OF RITUXIMAB AND BENDAMUSTINE (R?B REGIMEN).
     Route: 065
  12. CYTARABINE. [Suspect]
     Active Substance: CYTARABINE
     Dosage: FOLLOWING CYCLE OF HD ARAC WAS FORTIFIED WITH BENDAMUSTINE (SO CALLED R?BAC)
     Route: 065
  13. CYTARABINE. [Suspect]
     Active Substance: CYTARABINE
     Dosage: TWO CYCLES OF CNS PENETRATING CHEMOTHERAPY (MTX AND ARAC)
     Route: 065
  14. BENDAMUSTINE [Suspect]
     Active Substance: BENDAMUSTINE
     Indication: MANTLE CELL LYMPHOMA
     Dosage: SECOND CYCLE OF R?B
     Route: 065
     Dates: start: 201901
  15. IFOSFAMIDE. [Suspect]
     Active Substance: IFOSFAMIDE
     Indication: MANTLE CELL LYMPHOMA
     Dosage: UNK, CYCLIC
     Route: 065
  16. RITUXIMAB. [Suspect]
     Active Substance: RITUXIMAB
     Indication: MANTLE CELL LYMPHOMA
     Dosage: COMPLETED RESCUE THERAPY BY THE ADMINISTRATION OF THE 3RD CYCLE OF RICE
     Route: 065
  17. METHOTREXATE. [Suspect]
     Active Substance: METHOTREXATE
     Dosage: TWO CYCLES OF CNS PENETRATING CHEMOTHERAPY (MTX AND ARAC)
     Route: 065
  18. ETOPOSIDE. [Suspect]
     Active Substance: ETOPOSIDE
     Indication: MANTLE CELL LYMPHOMA
     Dosage: UNK, CYCLIC
     Route: 065
  19. CARMUSTINE. [Concomitant]
     Active Substance: CARMUSTINE

REACTIONS (4)
  - Mantle cell lymphoma [Recovered/Resolved]
  - Renal failure [Unknown]
  - Malignant neoplasm progression [Recovered/Resolved]
  - Off label use [Unknown]
